FAERS Safety Report 12476004 (Version 1)
Quarter: 2016Q2

REPORT INFORMATION
  Report Type: Report from Study
  Country: BE (occurrence: BE)
  Receive Date: 20160617
  Receipt Date: 20160617
  Transmission Date: 20160815
  Serious: Yes (Death, Hospitalization)
  Sender: FDA-Public Use
  Company Number: BE-PFIZER INC-3159961

PATIENT
  Age: 65 Year
  Sex: Male
  Weight: 61 kg

DRUGS (3)
  1. DOCETAXEL. [Suspect]
     Active Substance: DOCETAXEL
     Dosage: 113.29 MG, EVERY 3 WEEKS
     Route: 042
     Dates: start: 20160107
  2. AVELOX [Concomitant]
     Active Substance: MOXIFLOXACIN HYDROCHLORIDE
     Indication: LEUKOCYTOSIS
     Dosage: 400 MG, 1X/DAY
     Route: 048
     Dates: start: 20160107, end: 20160117
  3. DOCETAXEL. [Suspect]
     Active Substance: DOCETAXEL
     Indication: NON-SMALL CELL LUNG CANCER METASTATIC
     Dosage: 114.13 MG, EVERY 3 WEEKS
     Route: 042
     Dates: start: 20151218, end: 20160107

REACTIONS (4)
  - Dyspnoea [Not Recovered/Not Resolved]
  - Disease progression [Fatal]
  - Non-small cell lung cancer metastatic [Fatal]
  - Pneumonia [Not Recovered/Not Resolved]

NARRATIVE: CASE EVENT DATE: 20160122
